FAERS Safety Report 18375345 (Version 1)
Quarter: 2020Q4

REPORT INFORMATION
  Report Type: Spontaneous
  Country: US (occurrence: US)
  Receive Date: 20201010
  Receipt Date: 20201010
  Transmission Date: 20210114
  Serious: Yes (Other)
  Sender: FDA-Public Use
  Company Number: None

PATIENT
  Age: 67 Year
  Sex: Female
  Weight: 99 kg

DRUGS (16)
  1. FAMOTIDINE 20 MG ORAL TAB [Concomitant]
     Dates: start: 20201007, end: 20201007
  2. DEXAMETHASONE 10 MG IV [Concomitant]
     Dates: start: 20201007, end: 20201010
  3. REMDESIVIR. [Suspect]
     Active Substance: REMDESIVIR
     Indication: COVID-19
     Dosage: ?          OTHER FREQUENCY:200 MG ONCE;?
     Route: 042
     Dates: start: 20201006, end: 20201007
  4. AZITHROMYCIN 500 MG TAB [Concomitant]
     Dates: start: 20201005, end: 20201006
  5. AZITHROMYCIN 500 MG IV [Concomitant]
     Dates: start: 20201006, end: 20201008
  6. METOPROLOL 100 MG ORAL TAB [Concomitant]
     Dates: start: 20201004, end: 20201007
  7. DEXAMETHASONE 6 MG IV [Concomitant]
     Dates: start: 20201006, end: 20201006
  8. HYDRALAZINE 20 MG IV [Concomitant]
     Dates: start: 20201007, end: 20201007
  9. ZOLPIDEM [Concomitant]
     Active Substance: ZOLPIDEM TARTRATE
     Dates: start: 20201004, end: 20201007
  10. PROPOFOL. [Concomitant]
     Active Substance: PROPOFOL
     Dates: start: 20201006, end: 20201010
  11. DEXAMETHASONE 6 MG ORAL TAB [Concomitant]
     Dates: start: 20201006, end: 20201006
  12. LISINOPRIL 5 MG ORAL TAB [Concomitant]
     Dates: start: 20201004, end: 20201007
  13. XARELTO 20 MG TAB [Concomitant]
     Dates: start: 20201004, end: 20201010
  14. FUROSEMIDE 20 MG IV [Concomitant]
     Dates: start: 20201006, end: 20201006
  15. PROPAFENONE 150 MG ORAL TAB [Concomitant]
     Dates: start: 20201004, end: 20201007
  16. MULTIVITAMIN WITH MINERALS TAB [Concomitant]
     Dates: start: 20201004, end: 20201007

REACTIONS (1)
  - Alanine aminotransferase decreased [None]

NARRATIVE: CASE EVENT DATE: 20201007
